FAERS Safety Report 10441113 (Version 5)
Quarter: 2018Q1

REPORT INFORMATION
  Report Type: Spontaneous
  Country: US (occurrence: US)
  Receive Date: 20140909
  Receipt Date: 20180316
  Transmission Date: 20180508
  Serious: Yes (Hospitalization, Other)
  Sender: FDA-Public Use
  Company Number: US-009507513-1409USA003470

PATIENT
  Sex: Female
  Weight: 90.7 kg

DRUGS (7)
  1. FOSAMAX [Suspect]
     Active Substance: ALENDRONATE SODIUM
     Indication: OSTEOPOROSIS
  2. FOSAMAX [Suspect]
     Active Substance: ALENDRONATE SODIUM
     Indication: BONE DENSITY DECREASED
     Dosage: 70 MG, QW
     Route: 048
     Dates: start: 20010727
  3. FOSAMAX [Suspect]
     Active Substance: ALENDRONATE SODIUM
     Indication: OSTEOPOROSIS
  4. FOSAMAX [Suspect]
     Active Substance: ALENDRONATE SODIUM
     Indication: BONE DENSITY DECREASED
     Dosage: UNK
     Route: 048
     Dates: start: 1996
  5. RECLAST [Suspect]
     Active Substance: ZOLEDRONIC ACID
     Dosage: UNK
     Route: 042
     Dates: start: 2011
  6. RECLAST [Suspect]
     Active Substance: ZOLEDRONIC ACID
     Indication: OSTEOPOROSIS
     Dosage: UNK
     Route: 042
     Dates: start: 2010
  7. RECLAST [Suspect]
     Active Substance: ZOLEDRONIC ACID
     Dosage: UNK
     Route: 042
     Dates: start: 2012, end: 2012

REACTIONS (31)
  - Cerebrovascular accident [Unknown]
  - Hypocalcaemia [Recovering/Resolving]
  - Gastrooesophageal reflux disease [Unknown]
  - Hypertension [Unknown]
  - Rib fracture [Unknown]
  - Oral candidiasis [Unknown]
  - Insomnia [Unknown]
  - Vitamin D deficiency [Unknown]
  - Hypotension [Recovering/Resolving]
  - Chest pain [Unknown]
  - Epicondylitis [Recovering/Resolving]
  - Mastectomy [Unknown]
  - Femur fracture [Recovered/Resolved]
  - Hypokalaemia [Recovering/Resolving]
  - Hypovolaemia [Recovering/Resolving]
  - Osteoarthritis [Unknown]
  - Avulsion fracture [Unknown]
  - Hypothyroidism [Unknown]
  - Osteoarthritis [Unknown]
  - Breast cancer recurrent [Unknown]
  - Hiatus hernia [Unknown]
  - Arthralgia [Unknown]
  - Lymphoma [Unknown]
  - Diabetes mellitus [Unknown]
  - Ulna fracture [Unknown]
  - Radius fracture [Recovered/Resolved]
  - Radial nerve compression [Recovered/Resolved]
  - Sarcoidosis [Unknown]
  - Parathyroidectomy [Unknown]
  - Hepatic cyst [Unknown]
  - Back pain [Unknown]

NARRATIVE: CASE EVENT DATE: 20091125
